FAERS Safety Report 16750181 (Version 1)
Quarter: 2019Q3

REPORT INFORMATION
  Report Type: Spontaneous
  Country: BE (occurrence: BE)
  Receive Date: 20190828
  Receipt Date: 20190828
  Transmission Date: 20191005
  Serious: Yes (Death)
  Sender: FDA-Public Use
  Company Number: PHHY2019BE199192

PATIENT
  Age: 23 Year
  Sex: Female

DRUGS (1)
  1. RILATINE [Suspect]
     Active Substance: METHYLPHENIDATE HYDROCHLORIDE
     Indication: ATTENTION DEFICIT/HYPERACTIVITY DISORDER
     Dosage: UNK
     Route: 065

REACTIONS (6)
  - Contusion [Unknown]
  - Paralysis [Unknown]
  - Epistaxis [Unknown]
  - Irritability [Unknown]
  - Fatigue [Unknown]
  - Cardiac failure [Fatal]
